FAERS Safety Report 19177114 (Version 2)
Quarter: 2021Q2

REPORT INFORMATION
  Report Type: Spontaneous
  Country: US (occurrence: US)
  Receive Date: 20210424
  Receipt Date: 20210622
  Transmission Date: 20210717
  Serious: No
  Sender: FDA-Public Use
  Company Number: US-ASTRAZENECA-2021A266603

PATIENT
  Sex: Female

DRUGS (1)
  1. BYDUREON BCISE [Suspect]
     Active Substance: EXENATIDE
     Indication: TYPE 2 DIABETES MELLITUS
     Route: 058
     Dates: start: 202009

REACTIONS (6)
  - Injection site bruising [Unknown]
  - Device issue [Unknown]
  - Device malfunction [Recovered/Resolved]
  - Injection site pain [Unknown]
  - Incorrect dose administered by device [Unknown]
  - Needle issue [Unknown]
